FAERS Safety Report 16615366 (Version 2)
Quarter: 2019Q3

REPORT INFORMATION
  Report Type: Spontaneous
  Country: US (occurrence: US)
  Receive Date: 20190723
  Receipt Date: 20190920
  Transmission Date: 20191004
  Serious: No
  Sender: FDA-Public Use
  Company Number: US-JNJFOC-20190729862

PATIENT
  Age: 67 Year
  Sex: Male
  Weight: 84.44 kg

DRUGS (1)
  1. SYMTUZA [Suspect]
     Active Substance: COBICISTAT\DARUNAVIR\EMTRICITABINE\TENOFOVIR ALAFENAMIDE
     Indication: HIV INFECTION
     Dosage: 800/150/200/10MG
     Route: 048
     Dates: start: 20190507

REACTIONS (4)
  - Low density lipoprotein increased [Unknown]
  - Blood triglycerides increased [Unknown]
  - Blood creatine phosphokinase decreased [Unknown]
  - Product label issue [Unknown]

NARRATIVE: CASE EVENT DATE: 201906
